FAERS Safety Report 4837878-3 (Version None)
Quarter: 2005Q4

REPORT INFORMATION
  Report Type: 
  Country: None (occurrence: None)
  Receive Date: 20051024
  Receipt Date: 20050830
  Transmission Date: 20060501
  Serious: No
  Sender: FDA-Public Use
  Company Number: 217346

PATIENT
  Age: 15 Year
  Sex: Male
  Weight: 73.5 kg

DRUGS (2)
  1. XOLAIR [Suspect]
     Indication: ASTHMA
     Dates: start: 20031201
  2. PREDNISONE [Concomitant]

REACTIONS (1)
  - ARTHRALGIA [None]
